FAERS Safety Report 6293051-6 (Version None)
Quarter: 2009Q3

REPORT INFORMATION
  Report Type: 
  Country: None (occurrence: None)
  Receive Date: 20090731
  Receipt Date: 20090722
  Transmission Date: 20100115
  Serious: Yes (Other)
  Sender: FDA-Public Use
  Company Number: JP-BRISTOL-MYERS SQUIBB COMPANY-14714703

PATIENT
  Age: 68 Year
  Sex: Male

DRUGS (6)
  1. PARAPLATIN [Suspect]
     Indication: LUNG ADENOCARCINOMA
     Route: 041
  2. CISPLATIN [Suspect]
     Indication: LUNG ADENOCARCINOMA
     Route: 042
  3. DOCETAXEL [Suspect]
     Indication: LUNG ADENOCARCINOMA
     Dosage: FORM = INJ
     Route: 042
  4. VINORELBINE [Suspect]
     Indication: LUNG ADENOCARCINOMA
     Dosage: VINORELBINE DITARTRATE FORM = INJ
     Route: 042
  5. GEMCITABINE [Suspect]
     Indication: LUNG ADENOCARCINOMA
     Dosage: FORM = INJ
     Route: 042
  6. TEGAFUR + GIMERACIL + OTERACIL POTASSIUM [Concomitant]
     Indication: LUNG ADENOCARCINOMA
     Dosage: FORM = CAP
     Route: 048

REACTIONS (1)
  - PULMONARY EMBOLISM [None]
